FAERS Safety Report 4683649-0 (Version None)
Quarter: 2005Q2

REPORT INFORMATION
  Report Type: 
  Country: None (occurrence: None)
  Receive Date: 20050602
  Receipt Date: 20050328
  Transmission Date: 20051028
  Serious: No
  Sender: FDA-Public Use
  Company Number: USA041285719

PATIENT
  Age: 44 Year
  Sex: Female
  Weight: 97 kg

DRUGS (3)
  1. CYMBALTA [Suspect]
     Indication: DEPRESSION
     Dosage: 30 MG DAY
     Dates: start: 20041114, end: 20041116
  2. ZYRTEC [Concomitant]
  3. ESTRADIOL [Concomitant]

REACTIONS (3)
  - BLOOD PRESSURE INCREASED [None]
  - MALAISE [None]
  - PARAESTHESIA [None]
